FAERS Safety Report 8077769-0 (Version None)
Quarter: 2012Q1

REPORT INFORMATION
  Report Type: 
  Country: None (occurrence: None)
  Receive Date: 20120127
  Receipt Date: 20120113
  Transmission Date: 20120608
  Serious: Yes (Life-Threatening)
  Sender: FDA-Public Use
  Company Number: FR-PFIZER INC-2012003116

PATIENT
  Age: 67 Year
  Sex: Female

DRUGS (16)
  1. XANAX [Suspect]
     Dosage: 0.25 MG, 1X/DAY
     Route: 048
     Dates: start: 20111205, end: 20111214
  2. FLUCONAZOLE [Suspect]
     Dosage: 200 MG EVERY TWO DAYS
     Route: 042
     Dates: start: 20111117, end: 20111215
  3. ACETAMINOPHEN [Suspect]
     Dosage: 1 G, 3X/DAY
     Route: 048
     Dates: start: 20111130, end: 20111215
  4. CALCIPARINE [Concomitant]
     Dosage: 0.4 ML, 10000 IU/0.4 ML, UNK
     Route: 058
     Dates: start: 20111126
  5. PARACETAMOL [Concomitant]
     Dosage: 10MG/ML, 1 G, 4X/DAY
     Route: 042
     Dates: start: 20111125, end: 20111201
  6. VANCOMYCIN [Suspect]
     Dosage: UNK
     Route: 042
     Dates: start: 20111121, end: 20111127
  7. DUPHALAC [Concomitant]
     Dosage: UNK
     Route: 048
     Dates: end: 20111215
  8. ATARAX [Suspect]
     Dosage: 25 MG, UNK
     Route: 048
     Dates: start: 20111125, end: 20111129
  9. LEVOTHYROXINE SODIUM [Concomitant]
     Dosage: 20 ORAL DROPS, UNK
     Route: 048
     Dates: start: 20111129
  10. TRIMEBUTINE MALEATE [Concomitant]
     Dosage: UNK
     Route: 042
     Dates: start: 20111117, end: 20111202
  11. LEXOMIL [Concomitant]
     Dosage: HALF TABLET AT NIGHT
     Route: 048
     Dates: start: 20111201
  12. IMIPENEM AND CILASTATIN SODIUM [Suspect]
     Dosage: 500 MG, 2X/DAY
     Route: 042
     Dates: start: 20111111, end: 20111214
  13. ASPEGIC 325 [Concomitant]
     Dosage: 250 MG, DAILY
     Route: 048
     Dates: start: 20111125
  14. ASPEGIC 325 [Concomitant]
     Dosage: 100 MG, DAILY
     Route: 048
  15. PANTOPRAZOLE [Suspect]
     Dosage: 20 MG, 1X/DAY
     Route: 048
     Dates: start: 20111117, end: 20111214
  16. LEXOMIL [Concomitant]
     Dosage: UNK
     Route: 048
     Dates: start: 20111130, end: 20111204

REACTIONS (1)
  - AGRANULOCYTOSIS [None]
